FAERS Safety Report 4448005-9 (Version None)
Quarter: 2004Q3

REPORT INFORMATION
  Report Type: 
  Country: None (occurrence: None)
  Receive Date: 20040913
  Receipt Date: 20040830
  Transmission Date: 20050211
  Serious: Yes (Hospitalization, Other)
  Sender: FDA-Public Use
  Company Number: US-MERCK-0408USA02245

PATIENT
  Age: 67 Year
  Sex: Female

DRUGS (6)
  1. FOSAMAX [Concomitant]
     Route: 048
  2. NORVASC [Concomitant]
     Route: 065
  3. ZETIA [Suspect]
     Route: 048
     Dates: start: 20030101, end: 20040801
  4. MOTRIN [Concomitant]
     Route: 065
  5. SYNTHROID [Concomitant]
     Route: 065
  6. TOPROL-XL [Concomitant]
     Route: 048

REACTIONS (1)
  - ANAEMIA HAEMOLYTIC AUTOIMMUNE [None]
